FAERS Safety Report 6517875-2 (Version None)
Quarter: 2009Q4

REPORT INFORMATION
  Report Type: 
  Country: None (occurrence: None)
  Receive Date: 20091224
  Receipt Date: 20091222
  Transmission Date: 20100525
  Serious: Yes (Life-Threatening, Hospitalization, Other)
  Sender: FDA-Public Use
  Company Number: GB-B.I. PHARMACEUTICALS,INC./RIDGEFIELD-2009-UK-01068UK

PATIENT
  Sex: Male

DRUGS (12)
  1. MIRAPEX [Suspect]
     Indication: PARKINSON'S DISEASE
     Dosage: 1.05 MG
     Route: 048
     Dates: start: 20090601
  2. MIRAPEX [Suspect]
     Dosage: 0.54 MG
     Route: 048
  3. SPIRONOLACTONE [Concomitant]
     Indication: PULMONARY HYPERTENSION
     Dosage: 25 MG
     Route: 048
  4. AMLODIPINE [Concomitant]
     Indication: PULMONARY HYPERTENSION
     Dosage: 5 MG
     Route: 048
  5. LEVOTHYROXINE SODIUM [Concomitant]
     Dosage: REGULARLY.
  6. ZOPICLONE [Concomitant]
     Dosage: OCCASIONALLY.
  7. TAMSULOSIN HCL [Concomitant]
     Indication: PROSTATITIS
     Dosage: 400 MG
     Route: 048
  8. ATORVASTATIN [Concomitant]
     Indication: BLOOD CHOLESTEROL
     Dosage: 20 MG
     Route: 048
  9. OMEPRAZOLE [Concomitant]
     Dosage: REGULARLY.
  10. WARFARIN [Concomitant]
     Indication: EMBOLISM
     Dosage: REGULARLY - VARIES
     Route: 048
  11. MACROGOL [Concomitant]
     Indication: INFREQUENT BOWEL MOVEMENTS
     Dosage: 13.8G COMP NPL ORAL POWDER - AS DIRECTED
     Route: 048
  12. LEVOTHYROXINE SODIUM [Concomitant]
     Indication: HYPOTHYROIDISM
     Dosage: 75 MCG
     Route: 048

REACTIONS (4)
  - DRUG INEFFECTIVE [None]
  - INTERNATIONAL NORMALISED RATIO INCREASED [None]
  - PLATELET COUNT DECREASED [None]
  - PULMONARY EMBOLISM [None]
